FAERS Safety Report 6532257-5 (Version None)
Quarter: 2010Q1

REPORT INFORMATION
  Report Type: 
  Country: None (occurrence: None)
  Receive Date: 20100108
  Receipt Date: 20091231
  Transmission Date: 20100710
  Serious: Yes (Hospitalization, Other)
  Sender: FDA-Public Use
  Company Number: PHHY2009NL59754

PATIENT
  Age: 74 Year
  Sex: Male

DRUGS (2)
  1. DIOVAN [Suspect]
  2. NEXIUM [Suspect]

REACTIONS (5)
  - DRUG LEVEL INCREASED [None]
  - NAUSEA [None]
  - OVERDOSE [None]
  - RENAL FAILURE [None]
  - TRANSIENT ISCHAEMIC ATTACK [None]
